FAERS Safety Report 26202310 (Version 1)
Quarter: 2025Q4

REPORT INFORMATION
  Report Type: Spontaneous
  Country: US (occurrence: US)
  Receive Date: 20251226
  Receipt Date: 20251226
  Transmission Date: 20260117
  Serious: No
  Sender: SANOFI AVENTIS
  Company Number: US-SA-2025SA366381

PATIENT
  Sex: Male

DRUGS (9)
  1. DUPIXENT [Suspect]
     Active Substance: DUPILUMAB
     Indication: Dermatitis atopic
     Dosage: 300 MG, QOW
     Route: 058
  2. ERLEADA [Concomitant]
     Active Substance: APALUTAMIDE
  3. KETOCONAZOLE [Concomitant]
     Active Substance: KETOCONAZOLE
  4. LEVOTHYROXINE [Concomitant]
     Active Substance: LEVOTHYROXINE
  5. LUPRON DEPOT [Concomitant]
     Active Substance: LEUPROLIDE ACETATE
  6. METOPROLOL [Concomitant]
     Active Substance: METOPROLOL
  7. VITAMINS NOS [Concomitant]
     Active Substance: VITAMINS
  8. MUPIROCIN [Concomitant]
     Active Substance: MUPIROCIN
  9. VITAMIN C [Concomitant]
     Active Substance: ASCORBIC ACID

REACTIONS (1)
  - Therapeutic response shortened [Unknown]
